FAERS Safety Report 5663096-5 (Version None)
Quarter: 2008Q1

REPORT INFORMATION
  Report Type: 
  Country: None (occurrence: None)
  Receive Date: 20080313
  Receipt Date: 20080305
  Transmission Date: 20080703
  Serious: Yes (Other)
  Sender: FDA-Public Use
  Company Number: A0713536A

PATIENT
  Age: 60 Year
  Sex: Female

DRUGS (9)
  1. LAMICTAL [Suspect]
     Indication: BIPOLAR DISORDER
     Dosage: 100MG TWICE PER DAY
     Route: 048
     Dates: start: 20060101
  2. ADVAIR DISKUS 100/50 [Concomitant]
  3. SINGULAIR [Concomitant]
  4. ALBUTEROL [Concomitant]
  5. ACTONEL [Concomitant]
  6. NEXIUM [Concomitant]
  7. VITAMINS [Concomitant]
  8. MINERAL TAB [Concomitant]
  9. CALCIUM [Concomitant]

REACTIONS (10)
  - AMNESIA [None]
  - APHASIA [None]
  - CHOREA [None]
  - CONFUSIONAL STATE [None]
  - DISTURBANCE IN ATTENTION [None]
  - DYSPHASIA [None]
  - EMOTIONAL DISORDER [None]
  - FALL [None]
  - FLAT AFFECT [None]
  - INCOHERENT [None]
